FAERS Safety Report 7517000-5 (Version None)
Quarter: 2011Q2

REPORT INFORMATION
  Report Type: 
  Country: None (occurrence: None)
  Receive Date: 20110601
  Receipt Date: 20110520
  Transmission Date: 20111010
  Serious: Yes (Other)
  Sender: FDA-Public Use
  Company Number: PHHY2011US24966

PATIENT
  Sex: Male
  Weight: 72 kg

DRUGS (12)
  1. ARICEPT [Concomitant]
     Dosage: 10 MG, UNK
     Route: 048
     Dates: start: 20060516
  2. PROVIGIL [Concomitant]
     Indication: FATIGUE
     Dosage: 1000 MG, PRN
     Route: 048
     Dates: start: 20081111
  3. GILENYA [Suspect]
     Indication: MULTIPLE SCLEROSIS
     Dosage: 0.5 MG, DAILY
     Route: 048
     Dates: start: 20110113, end: 20110323
  4. FAMPRIDINE [Concomitant]
     Dosage: 10 MG, UNK
     Route: 048
     Dates: start: 20110407
  5. EFFEXOR XR [Concomitant]
     Dosage: 150 MG, UNK
     Route: 048
     Dates: start: 20081111
  6. LEXAPRO [Concomitant]
     Dosage: 20 MG, UNK
     Route: 048
  7. PRAVASTATIN SODIUM [Concomitant]
     Dosage: 40 MG, UNK
     Route: 048
     Dates: start: 20081111
  8. NAMENDA [Concomitant]
     Dosage: 10 MG, QD
     Route: 048
     Dates: start: 20060516
  9. ASPIRIN [Concomitant]
     Dosage: 81 MG, UNK
     Route: 048
  10. HYDROCHLOROTHIAZIDE [Concomitant]
     Dosage: 25 MG, UNK
     Route: 048
  11. LEXAPRO [Concomitant]
     Dosage: 10 MG, UNK
     Route: 048
     Dates: start: 20081111
  12. VENLAFAXINE HCL [Concomitant]
     Dosage: 75 MG, UNK
     Route: 048
     Dates: start: 20110125

REACTIONS (7)
  - CONJUNCTIVITIS ALLERGIC [None]
  - CATARACT NUCLEAR [None]
  - VITREOUS DISORDER [None]
  - MACULAR OEDEMA [None]
  - BLEPHARITIS [None]
  - VISUAL IMPAIRMENT [None]
  - MACULOPATHY [None]
